FAERS Safety Report 8741854 (Version 6)
Quarter: 2014Q2

REPORT INFORMATION
  Report Type: Spontaneous
  Country: US (occurrence: US)
  Receive Date: 20120824
  Receipt Date: 20131024
  Transmission Date: 20141212
  Serious: No
  Sender: FDA-Public Use
  Company Number: US-PFIZER INC-2012203966

PATIENT
  Age: 63 Year
  Sex: Female
  Weight: 263 kg

DRUGS (4)
  1. PREMPRO [Suspect]
     Indication: MENOPAUSAL SYMPTOMS
     Dosage: 1 DF, 1X/DAY, (0.625/2.5MG)
     Route: 048
     Dates: start: 201208
  2. PREMPRO [Suspect]
     Dosage: 1 DF, 1X/DAY, (0.625/2.5MG)
  3. LISINOPRIL [Concomitant]
     Indication: HYPERTENSION
     Dosage: 10 MG, 1X/DAY
  4. DILTIAZEM [Concomitant]
     Indication: HYPERTENSION
     Dosage: 180 MG, 1X/DAY

REACTIONS (11)
  - Drug ineffective [Unknown]
  - Hot flush [Recovered/Resolved]
  - Irritability [Recovered/Resolved]
  - Abdominal distension [Not Recovered/Not Resolved]
  - Metrorrhagia [Not Recovered/Not Resolved]
  - Uterine spasm [Unknown]
  - Muscle spasms [Recovered/Resolved]
  - Anxiety [Recovered/Resolved]
  - Insomnia [Recovered/Resolved]
  - Swelling [Recovered/Resolved]
  - Weight increased [Unknown]
